FAERS Safety Report 8231129-8 (Version None)
Quarter: 2012Q1

REPORT INFORMATION
  Report Type: 
  Country: None (occurrence: None)
  Receive Date: 20120323
  Receipt Date: 20120315
  Transmission Date: 20120608
  Serious: Yes (Other)
  Sender: FDA-Public Use
  Company Number: CA-JNJFOC-20120307336

PATIENT
  Sex: Male
  Weight: 66 kg

DRUGS (1)
  1. REMICADE [Suspect]
     Indication: ANKYLOSING SPONDYLITIS
     Route: 042
     Dates: start: 20090101

REACTIONS (3)
  - RESPIRATORY DISORDER [None]
  - CHEST PAIN [None]
  - HEART RATE INCREASED [None]
